FAERS Safety Report 21663404 (Version 2)
Quarter: 2023Q1

REPORT INFORMATION
  Report Type: Report from Study
  Country: US (occurrence: US)
  Receive Date: 20221130
  Receipt Date: 20230110
  Transmission Date: 20230417
  Serious: No
  Sender: FDA-Public Use
  Company Number: US-ABBVIE-4192034

PATIENT
  Sex: Female

DRUGS (1)
  1. HUMIRA [Suspect]
     Active Substance: ADALIMUMAB
     Indication: Uveitis
     Dosage: CITRATE FREE?FORM STRENGTH: 40
     Route: 058
     Dates: start: 20220607

REACTIONS (5)
  - Oropharyngeal pain [Not Recovered/Not Resolved]
  - Hordeolum [Unknown]
  - SARS-CoV-2 test positive [Recovering/Resolving]
  - Sputum discoloured [Not Recovered/Not Resolved]
  - Fatigue [Unknown]

NARRATIVE: CASE EVENT DATE: 20220101
